FAERS Safety Report 21475985 (Version 3)
Quarter: 2025Q1

REPORT INFORMATION
  Report Type: Spontaneous
  Country: US (occurrence: None)
  Receive Date: 20221019
  Receipt Date: 20250226
  Transmission Date: 20250409
  Serious: Yes (Other)
  Sender: ADAMAS PHARMA
  Company Number: US-ADAMAS Pharma-ADM202207-002054

PATIENT
  Age: 69 Year
  Sex: Male

DRUGS (28)
  1. GOCOVRI [Suspect]
     Active Substance: AMANTADINE
     Indication: Dyskinesia
     Route: 048
     Dates: start: 20190410
  2. GOCOVRI [Suspect]
     Active Substance: AMANTADINE
     Indication: Parkinson^s disease
  3. AMOXICILLIN [Concomitant]
     Active Substance: AMOXICILLIN
  4. AZILECT [Concomitant]
     Active Substance: RASAGILINE MESYLATE
  5. BOTOX [Concomitant]
     Active Substance: ONABOTULINUMTOXINA
  6. CARBIDOPA [Concomitant]
     Active Substance: CARBIDOPA
  7. CIPROFLOXACIN [Concomitant]
     Active Substance: CIPROFLOXACIN
  8. COREG [Concomitant]
     Active Substance: CARVEDILOL
  9. FENOFIBRATE [Concomitant]
     Active Substance: FENOFIBRATE
  10. FLOMAX [Concomitant]
     Active Substance: TAMSULOSIN HYDROCHLORIDE
  11. PERCOCET [Concomitant]
     Active Substance: ACETAMINOPHEN\OXYCODONE HYDROCHLORIDE
  12. PLAVIX [Concomitant]
     Active Substance: CLOPIDOGREL BISULFATE
  13. RESTASIS [Concomitant]
     Active Substance: CYCLOSPORINE
  14. SEROQUEL [Concomitant]
     Active Substance: QUETIAPINE FUMARATE
  15. STALEVO [Concomitant]
     Active Substance: CARBIDOPA\ENTACAPONE\LEVODOPA
  16. TESTOSTERONE CYPIONATE [Concomitant]
     Active Substance: TESTOSTERONE CYPIONATE
  17. XANAX [Concomitant]
     Active Substance: ALPRAZOLAM
  18. ZOFRAN [Concomitant]
     Active Substance: ONDANSETRON HYDROCHLORIDE
  19. ZOLPIDEM [Concomitant]
     Active Substance: ZOLPIDEM TARTRATE
  20. LEVOTHYROXINE [Concomitant]
     Active Substance: LEVOTHYROXINE
  21. REPATHA [Concomitant]
     Active Substance: EVOLOCUMAB
  22. AMOXICILLIN\CLAVULANIC ACID [Concomitant]
     Active Substance: AMOXICILLIN\CLAVULANIC ACID
  23. ASPIRIN [Concomitant]
     Active Substance: ASPIRIN
  24. BRILINTA [Concomitant]
     Active Substance: TICAGRELOR
  25. LEVOFLOXACIN [Concomitant]
     Active Substance: LEVOFLOXACIN
  26. METOPROLOL TARTRATE [Concomitant]
     Active Substance: METOPROLOL TARTRATE
  27. QUETIAPINE [Concomitant]
     Active Substance: QUETIAPINE
  28. ROSUVASTATIN [Concomitant]
     Active Substance: ROSUVASTATIN

REACTIONS (23)
  - Precancerous condition [Unknown]
  - Cardiac disorder [Unknown]
  - Dysphemia [Not Recovered/Not Resolved]
  - Dysgraphia [Not Recovered/Not Resolved]
  - Brain fog [Not Recovered/Not Resolved]
  - Spinal osteoarthritis [Unknown]
  - Intervertebral disc protrusion [Unknown]
  - Back pain [Unknown]
  - Sleep disorder [Unknown]
  - Migraine [Unknown]
  - Ageusia [Unknown]
  - Anosmia [Unknown]
  - Tremor [Unknown]
  - Anxiety [Not Recovered/Not Resolved]
  - Constipation [Not Recovered/Not Resolved]
  - Dry mouth [Unknown]
  - Depression [Unknown]
  - Fatigue [Unknown]
  - Insomnia [Unknown]
  - Urinary tract infection [Unknown]
  - Impulse-control disorder [Unknown]
  - Compulsions [Unknown]
  - Product dose omission issue [Unknown]
